FAERS Safety Report 13860060 (Version 4)
Quarter: 2019Q1

REPORT INFORMATION
  Report Type: Report from Study
  Country: DE (occurrence: DE)
  Receive Date: 20170811
  Receipt Date: 20190213
  Transmission Date: 20190417
  Serious: Yes (Hospitalization)
  Sender: FDA-Public Use
  Company Number: DE-INCYTE CORPORATION-2017IN004859

PATIENT

DRUGS (9)
  1. MERCAPTOPURINE. [Concomitant]
     Active Substance: MERCAPTOPURINE
     Indication: PRODUCT USED FOR UNKNOWN INDICATION
     Dosage: 50 OT, QD
     Route: 065
     Dates: start: 20160510
  2. SYREA [Concomitant]
     Active Substance: HYDROXYUREA
     Indication: PRODUCT USED FOR UNKNOWN INDICATION
     Dosage: 500 OT, UNK (2-2-2)
     Route: 065
     Dates: start: 20160315, end: 20160510
  3. INCB018424 [Suspect]
     Active Substance: RUXOLITINIB
     Indication: MYELOFIBROSIS
     Dosage: 20 MG/DAY/TWICE
     Route: 048
     Dates: start: 20151222, end: 20160202
  4. INCB018424 [Suspect]
     Active Substance: RUXOLITINIB
     Dosage: 15 MG, QD
     Route: 048
     Dates: start: 20170602
  5. INCB018424 [Suspect]
     Active Substance: RUXOLITINIB
     Dosage: 30 MG/DAY/TWICE
     Route: 048
     Dates: start: 20160203, end: 20160322
  6. INCB018424 [Suspect]
     Active Substance: RUXOLITINIB
     Dosage: 30 MG/DAY/TWICE
     Route: 048
     Dates: start: 20170307, end: 20170523
  7. PURINETHOL [Concomitant]
     Active Substance: MERCAPTOPURINE
     Indication: PRODUCT USED FOR UNKNOWN INDICATION
     Dosage: 50 OT, UNK
     Route: 065
     Dates: start: 20160511
  8. INCB018424 [Suspect]
     Active Substance: RUXOLITINIB
     Dosage: 20 MG/DAY/TWICE
     Route: 048
     Dates: start: 20160323, end: 20170306
  9. EXJADE [Concomitant]
     Active Substance: DEFERASIROX
     Indication: PRODUCT USED FOR UNKNOWN INDICATION
     Dosage: 720 OT, UNK
     Route: 065
     Dates: start: 20170621

REACTIONS (10)
  - Haemoglobin decreased [Unknown]
  - Pneumonia [Recovered/Resolved]
  - General physical health deterioration [Unknown]
  - Neutrophil count increased [Unknown]
  - Basophil count decreased [Unknown]
  - Eosinophil count decreased [Unknown]
  - Platelet count decreased [Unknown]
  - Red blood cell count decreased [Unknown]
  - Herpes zoster [Not Recovered/Not Resolved]
  - Lymphocyte count increased [Unknown]

NARRATIVE: CASE EVENT DATE: 20170522
